FAERS Safety Report 21331659 (Version 2)
Quarter: 2022Q4

REPORT INFORMATION
  Report Type: Spontaneous
  Country: FR (occurrence: FR)
  Receive Date: 20220914
  Receipt Date: 20221129
  Transmission Date: 20230113
  Serious: Yes (Congenital Anomaly)
  Sender: FDA-Public Use
  Company Number: FR-MYLANLABS-2022M1044817

PATIENT
  Sex: Male

DRUGS (2)
  1. VALPROIC ACID [Suspect]
     Active Substance: VALPROIC ACID
     Indication: Epilepsy
     Dosage: UNK
     Route: 064
     Dates: start: 20071215, end: 20080902
  2. VALPROATE SODIUM [Suspect]
     Active Substance: VALPROATE SODIUM
     Indication: Epilepsy
     Dosage: UNK
     Route: 064

REACTIONS (20)
  - Anxiety disorder [Unknown]
  - Learning disorder [Unknown]
  - Attention deficit hyperactivity disorder [Unknown]
  - Encopresis [Not Recovered/Not Resolved]
  - Dysmorphism [Unknown]
  - Memory impairment [Unknown]
  - Scoliosis [Unknown]
  - Fatigue [Unknown]
  - Psychiatric symptom [Unknown]
  - Hypermobility syndrome [Unknown]
  - Visual impairment [Unknown]
  - Disturbance in social behaviour [Unknown]
  - Emotional disorder [Unknown]
  - Cognitive disorder [Unknown]
  - Behaviour disorder [Unknown]
  - Motor dysfunction [Unknown]
  - Enuresis [Not Recovered/Not Resolved]
  - Foetal exposure during pregnancy [Unknown]
  - Dyspraxia [Unknown]
  - Hypertonia [Unknown]
